FAERS Safety Report 9868342 (Version 2)
Quarter: 2014Q1

REPORT INFORMATION
  Report Type: Spontaneous
  Country: JP (occurrence: JP)
  Receive Date: 20140204
  Receipt Date: 20140214
  Transmission Date: 20141002
  Serious: Yes (Hospitalization)
  Sender: FDA-Public Use
  Company Number: JP-NAPPMUNDI-GBR-2014-0016976

PATIENT
  Age: 61 Year
  Sex: Male

DRUGS (3)
  1. OXYCODONE HCL PR TABLET 20 MG [Suspect]
     Indication: CANCER PAIN
     Dosage: 20 MG, DAILY
     Route: 048
     Dates: start: 20140110, end: 20140121
  2. OXYCODONE HCL IR POWDER 0.5% [Suspect]
     Indication: CANCER PAIN
     Dosage: UNK
     Route: 048
     Dates: start: 20140110
  3. TS-1                               /01593501/ [Concomitant]
     Dosage: UNK
     Dates: start: 20140111, end: 20140112

REACTIONS (1)
  - Anaemia [Recovering/Resolving]
